FAERS Safety Report 20118739 (Version 1)
Quarter: 2021Q4

REPORT INFORMATION
  Report Type: Spontaneous
  Country: US (occurrence: US)
  Receive Date: 20211126
  Receipt Date: 20211126
  Transmission Date: 20220304
  Serious: No
  Sender: FDA-Public Use
  Company Number: US-SUNOVION-2021SUN004429

PATIENT
  Sex: Male

DRUGS (2)
  1. LATUDA [Suspect]
     Active Substance: LURASIDONE HYDROCHLORIDE
     Indication: Product used for unknown indication
     Dosage: 20 MG
     Route: 048
  2. LATUDA [Suspect]
     Active Substance: LURASIDONE HYDROCHLORIDE
     Dosage: 40 MG
     Route: 048

REACTIONS (1)
  - Mania [Unknown]
